FAERS Safety Report 21896349 (Version 1)
Quarter: 2023Q1

REPORT INFORMATION
  Report Type: Spontaneous
  Country: DE (occurrence: DE)
  Receive Date: 20230123
  Receipt Date: 20230123
  Transmission Date: 20230418
  Serious: Yes (Other)
  Sender: FDA-Public Use
  Company Number: DE-ALKEM LABORATORIES LIMITED-DE-ALKEM-2022-13819

PATIENT

DRUGS (1)
  1. FINGOLIMOD [Suspect]
     Active Substance: FINGOLIMOD
     Indication: Multiple sclerosis
     Dosage: UNK CAPSULE
     Route: 065

REACTIONS (8)
  - Lymphocyte count decreased [Unknown]
  - Monocyte count decreased [Unknown]
  - Basophil count decreased [Unknown]
  - Anisocytosis [Unknown]
  - C-reactive protein increased [Unknown]
  - Eosinophil count decreased [Unknown]
  - Gamma-glutamyltransferase increased [Unknown]
  - Basophil count increased [Unknown]
